FAERS Safety Report 4704167-7 (Version None)
Quarter: 2005Q2

REPORT INFORMATION
  Report Type: 
  Country: None (occurrence: None)
  Receive Date: 20050629
  Receipt Date: 20050616
  Transmission Date: 20051028
  Serious: Yes (Other)
  Sender: FDA-Public Use
  Company Number: 2005BI011614

PATIENT
  Age: 31 Year
  Sex: Female

DRUGS (3)
  1. AVONEX [Suspect]
     Indication: MULTIPLE SCLEROSIS
     Dosage: IM
     Route: 030
     Dates: start: 20010101, end: 20030101
  2. STEROIDS [Concomitant]
  3. HEPARIN [Concomitant]

REACTIONS (6)
  - ABORTION SPONTANEOUS [None]
  - DIARRHOEA [None]
  - DRUG EXPOSURE DURING PREGNANCY [None]
  - INFLUENZA LIKE ILLNESS [None]
  - PLACENTAL DISORDER [None]
  - THROMBOSIS [None]
